FAERS Safety Report 19461730 (Version 2)
Quarter: 2021Q2

REPORT INFORMATION
  Report Type: Report from Study
  Country: US (occurrence: US)
  Receive Date: 20210625
  Receipt Date: 20210628
  Transmission Date: 20210717
  Serious: Yes (Life-Threatening, Hospitalization)
  Sender: FDA-Public Use
  Company Number: US-BAYER-2021-162121

PATIENT
  Age: 32 Year
  Sex: Male

DRUGS (2)
  1. VITRAKVI [Suspect]
     Active Substance: LAROTRECTINIB
     Indication: SARCOMA
     Dosage: 100 MG, QD
  2. VITRAKVI [Suspect]
     Active Substance: LAROTRECTINIB
     Indication: SARCOMA

REACTIONS (14)
  - Dizziness [None]
  - Eye movement disorder [Not Recovered/Not Resolved]
  - Pain [Not Recovered/Not Resolved]
  - Neurotoxicity [Not Recovered/Not Resolved]
  - Withdrawal syndrome [None]
  - Speech disorder [None]
  - Coordination abnormal [None]
  - Hypoaesthesia [Not Recovered/Not Resolved]
  - Visual impairment [Not Recovered/Not Resolved]
  - Product use issue [None]
  - Nervous system disorder [Not Recovered/Not Resolved]
  - Pain in jaw [Not Recovered/Not Resolved]
  - Memory impairment [None]
  - Product prescribing issue [None]

NARRATIVE: CASE EVENT DATE: 20210617
